FAERS Safety Report 14716733 (Version 1)
Quarter: 2018Q2

REPORT INFORMATION
  Report Type: Spontaneous
  Country: DE (occurrence: DE)
  Receive Date: 20180404
  Receipt Date: 20180404
  Transmission Date: 20180711
  Serious: Yes (Hospitalization, Congenital Anomaly)
  Sender: FDA-Public Use
  Company Number: DE-MYLANLABS-2018M1021010

PATIENT
  Sex: Female

DRUGS (2)
  1. LAMOTRIGINE. [Suspect]
     Active Substance: LAMOTRIGINE
     Indication: EPILEPSY
     Dosage: 100 MG, Q2D
     Route: 064
  2. VALPROIC ACID. [Suspect]
     Active Substance: VALPROIC ACID
     Indication: EPILEPSY
     Dosage: 1 G, UNK, MATERNAL DOSE: 1000 MG 1/2-0-1
     Route: 064

REACTIONS (12)
  - Foetal anticonvulsant syndrome [Unknown]
  - Paralysis [Unknown]
  - Spina bifida [Unknown]
  - Foetal exposure during pregnancy [Unknown]
  - Arnold-Chiari malformation [Unknown]
  - Low set ears [Unknown]
  - Dysmorphism [Unknown]
  - Meningomyelocele [Unknown]
  - Talipes [Unknown]
  - Cardiac aneurysm [Unknown]
  - Cerebral ventricle dilatation [Unknown]
  - Microcephaly [Unknown]
